FAERS Safety Report 5170209-0 (Version None)
Quarter: 2006Q4

REPORT INFORMATION
  Report Type: 
  Country: None (occurrence: None)
  Receive Date: 20061212
  Receipt Date: 20061129
  Transmission Date: 20070319
  Serious: Yes (Hospitalization)
  Sender: FDA-Public Use
  Company Number: AT-ELI_LILLY_AND_COMPANY-AT200611005187

PATIENT
  Age: 42 Year
  Sex: Male
  Weight: 73 kg

DRUGS (4)
  1. CYMBALTA [Suspect]
     Indication: DEPRESSION
     Dosage: 60 MG, DAILY (1/D)
     Dates: start: 20061015, end: 20061128
  2. NEXIUM [Concomitant]
     Indication: GASTRIC DISORDER
     Dosage: 40 MG, DAILY (1/D)
     Dates: start: 20061030, end: 20061129
  3. PANKREOFLAT [Concomitant]
     Indication: FLATULENCE
     Dosage: UNK, 3/D
     Route: 048
     Dates: start: 20060901
  4. PANTOLOC [Concomitant]
     Indication: GASTROINTESTINAL DISORDER
     Dosage: 40 MG, DAILY (1/D)

REACTIONS (1)
  - HALLUCINATION, AUDITORY [None]
